FAERS Safety Report 4361036-2 (Version None)
Quarter: 2004Q2

REPORT INFORMATION
  Report Type: 
  Country: None (occurrence: None)
  Receive Date: 20040517
  Receipt Date: 20030918
  Transmission Date: 20050107
  Serious: Yes (Hospitalization)
  Sender: FDA-Public Use
  Company Number: 2003-106489-NL

PATIENT
  Age: 82 Year
  Sex: Female

DRUGS (9)
  1. MIRTAZAPINE [Suspect]
     Indication: DEPRESSION
     Dosage: 15 MG BID/7.5 MG, ORAL
     Route: 048
     Dates: start: 20021220, end: 20021220
  2. MIRTAZAPINE [Suspect]
     Indication: DEPRESSION
     Dosage: 15 MG BID/7.5 MG, ORAL
     Route: 048
     Dates: start: 20021223, end: 20021223
  3. AMIODARONE HCL [Suspect]
     Dosage: 100 MG, ORAL
     Route: 048
  4. DILTIAZEM [Suspect]
     Dosage: 360 MG, ORAL
     Route: 048
  5. LOSARTAN POTASSIUM [Concomitant]
  6. FUROSEMIDE [Concomitant]
  7. ISOSORBIDE DINITRATE [Concomitant]
  8. ATORVASTATIN CALCIUM [Concomitant]
  9. THYROXYNE SODIUM [Concomitant]

REACTIONS (4)
  - DEPRESSED LEVEL OF CONSCIOUSNESS [None]
  - DRUG INTERACTION [None]
  - RESPIRATORY DEPRESSION [None]
  - SOMNOLENCE [None]
